FAERS Safety Report 5097095-1 (Version None)
Quarter: 2006Q3

REPORT INFORMATION
  Report Type: 
  Country: None (occurrence: None)
  Receive Date: 20060901
  Receipt Date: 20060815
  Transmission Date: 20061208
  Serious: Yes (Hospitalization)
  Sender: FDA-Public Use
  Company Number: US200608004325

PATIENT
  Sex: Female
  Weight: 71.7 kg

DRUGS (1)
  1. ZYPREXA [Suspect]
     Dosage: 15 MG, ORAL
     Route: 048
     Dates: start: 20020101

REACTIONS (2)
  - CARDIAC DISORDER [None]
  - DIABETES MELLITUS [None]
